FAERS Safety Report 4531646-8 (Version None)
Quarter: 2004Q4

REPORT INFORMATION
  Report Type: 
  Country: None (occurrence: None)
  Receive Date: 20041216
  Receipt Date: 20041216
  Transmission Date: 20050328
  Serious: Yes (Hospitalization)
  Sender: FDA-Public Use
  Company Number: None

PATIENT
  Age: 17 Year
  Sex: Male
  Weight: 159.2126 kg

DRUGS (1)
  1. SEROQUEL [Suspect]
     Indication: MENTAL RETARDATION SEVERITY UNSPECIFIED
     Dosage: 300 MG QID, 200 MG QHS

REACTIONS (1)
  - PRIAPISM [None]
